FAERS Safety Report 12532141 (Version 2)
Quarter: 2016Q3

REPORT INFORMATION
  Report Type: Report from Study
  Country: US (occurrence: US)
  Receive Date: 20160706
  Receipt Date: 20160718
  Transmission Date: 20161109
  Serious: Yes (Other)
  Sender: FDA-Public Use
  Company Number: US-BIOGEN-2016BI00178922

PATIENT
  Age: 33 Year
  Sex: Female
  Weight: 77.18 kg

DRUGS (9)
  1. AVONEX [Suspect]
     Active Substance: INTERFERON BETA-1A
     Route: 030
     Dates: start: 20151023, end: 20160430
  2. AVONEX [Suspect]
     Active Substance: INTERFERON BETA-1A
     Route: 030
     Dates: start: 201601
  3. AVONEX [Suspect]
     Active Substance: INTERFERON BETA-1A
     Route: 065
     Dates: end: 20160502
  4. AVONEX [Suspect]
     Active Substance: INTERFERON BETA-1A
     Indication: MULTIPLE SCLEROSIS
     Route: 030
  5. KLONOPIN [Concomitant]
     Active Substance: CLONAZEPAM
     Indication: PRODUCT USED FOR UNKNOWN INDICATION
     Route: 065
  6. AVONEX [Suspect]
     Active Substance: INTERFERON BETA-1A
     Route: 030
     Dates: start: 20151015, end: 20160401
  7. AVONEX [Suspect]
     Active Substance: INTERFERON BETA-1A
     Route: 065
     Dates: end: 20160523
  8. ADVIL [Concomitant]
     Active Substance: IBUPROFEN
     Indication: PREMEDICATION
     Route: 065
  9. BUSPAR [Concomitant]
     Active Substance: BUSPIRONE HYDROCHLORIDE
     Indication: PRODUCT USED FOR UNKNOWN INDICATION
     Route: 065

REACTIONS (28)
  - Delirium [Unknown]
  - Back pain [Unknown]
  - Influenza [Unknown]
  - Anxiety [Unknown]
  - Pyrexia [Unknown]
  - Nasopharyngitis [Not Recovered/Not Resolved]
  - Dysstasia [Unknown]
  - Tremor [Unknown]
  - Myalgia [Unknown]
  - Multiple sclerosis [Unknown]
  - Peripheral coldness [Unknown]
  - Adverse reaction [Unknown]
  - Temperature intolerance [Unknown]
  - Chills [Not Recovered/Not Resolved]
  - Stress [Not Recovered/Not Resolved]
  - Feeling cold [Unknown]
  - Somnolence [Recovered/Resolved]
  - Fatigue [Not Recovered/Not Resolved]
  - Spinal pain [Unknown]
  - Influenza like illness [Not Recovered/Not Resolved]
  - White blood cell count decreased [Not Recovered/Not Resolved]
  - Constipation [Recovered/Resolved]
  - Asthenia [Unknown]
  - Seizure [Recovered/Resolved with Sequelae]
  - Musculoskeletal disorder [Unknown]
  - Vomiting [Recovered/Resolved]
  - Fungal infection [Unknown]
  - Impaired quality of life [Recovered/Resolved]

NARRATIVE: CASE EVENT DATE: 2015
